FAERS Safety Report 24970857 (Version 1)
Quarter: 2025Q1

REPORT INFORMATION
  Report Type: Spontaneous
  Country: FR (occurrence: FR)
  Receive Date: 20250214
  Receipt Date: 20250214
  Transmission Date: 20250409
  Serious: Yes (Hospitalization)
  Sender: RANBAXY
  Company Number: FR-SUN PHARMACEUTICAL INDUSTRIES LTD-2025RR-494948

PATIENT
  Age: 76 Year
  Sex: Male
  Weight: 96.1 kg

DRUGS (16)
  1. PANTOPRAZOLE [Suspect]
     Active Substance: PANTOPRAZOLE
     Indication: Abdominal pain upper
     Dosage: 1 TSP IN THE EVENING
     Route: 048
     Dates: start: 20241106, end: 20241114
  2. HUMALOG [Concomitant]
     Active Substance: INSULIN LISPRO
     Indication: Type 2 diabetes mellitus
     Dosage: 0.001 IU VIA SC ROUTE IF NECESSARY FOR 1 MONTH
     Route: 058
     Dates: start: 20241106
  3. INNOHEP [Concomitant]
     Active Substance: TINZAPARIN SODIUM
     Indication: Product used for unknown indication
     Dosage: 1 SRG AT 8 A.M. BY SC ROUTE FOR 30 DAYS
     Route: 058
  4. INNOHEP [Concomitant]
     Active Substance: TINZAPARIN SODIUM
     Dosage: 1 SRG ? 8H PAR VOIE SC PENDANT 30 JOURS
     Route: 065
     Dates: start: 20241107, end: 20241112
  5. BISOPROLOL FUMARATE [Concomitant]
     Active Substance: BISOPROLOL FUMARATE
     Indication: Product used for unknown indication
     Dosage: 1 TAB IN THE MORNING ORALLY
     Route: 048
  6. BISOPROLOL FUMARATE [Concomitant]
     Active Substance: BISOPROLOL FUMARATE
     Dosage: 1 CP LE MATIN PAR VOIE ORALE
     Route: 048
     Dates: start: 20241107, end: 20241113
  7. FOLIC ACID [Concomitant]
     Active Substance: FOLIC ACID
     Indication: Product used for unknown indication
     Dosage: 1 TEASPOON MORNING, NOON AND EVENING
     Route: 048
     Dates: start: 20241107, end: 20241108
  8. FOLIC ACID [Concomitant]
     Active Substance: FOLIC ACID
     Route: 048
     Dates: start: 20241109, end: 20241109
  9. FOLIC ACID [Concomitant]
     Active Substance: FOLIC ACID
     Dosage: 1 CP MATIN, MIDI ET SOIR
     Route: 048
     Dates: start: 20241110, end: 20241113
  10. FOLIC ACID [Concomitant]
     Active Substance: FOLIC ACID
     Route: 048
     Dates: start: 20241114, end: 20241114
  11. FOLIC ACID [Concomitant]
     Active Substance: FOLIC ACID
     Dosage: 1 CP MATIN, MIDI ET SOIR
     Route: 065
     Dates: start: 20241115
  12. DOLIPRANE [Concomitant]
     Active Substance: ACETAMINOPHEN
     Indication: Pain
     Dosage: 2 CAPSULES IF NECESSARY IF EVA } 3, 6 CAPSULES MAXIMUM PER 24 HOURS
     Route: 048
  13. ALFUZOSIN HYDROCHLORIDE [Concomitant]
     Active Substance: ALFUZOSIN HYDROCHLORIDE
     Indication: Benign prostatic hyperplasia
     Dosage: 1 TSP IN THE EVENING FOR 10 DAYS
     Route: 048
     Dates: start: 20241113
  14. POTASSIUM CHLORIDE [Concomitant]
     Active Substance: POTASSIUM CHLORIDE
     Indication: Product used for unknown indication
     Dosage: 1 CAPSULE FOR LUNCH AND DINNER FOR 10 DAYS
     Route: 048
     Dates: start: 20241114
  15. LYRICA [Concomitant]
     Active Substance: PREGABALIN
     Indication: Product used for unknown indication
     Dosage: 1 CAPSULE MORNING AND EVENING FOR 10 DAYS
     Route: 048
     Dates: start: 20241113
  16. FUROSEMIDE [Concomitant]
     Active Substance: FUROSEMIDE
     Indication: Product used for unknown indication
     Dosage: 500MG/24H IVSE
     Route: 065

REACTIONS (1)
  - Tubulointerstitial nephritis [Recovering/Resolving]
